FAERS Safety Report 20078874 (Version 1)
Quarter: 2021Q4

REPORT INFORMATION
  Report Type: Spontaneous
  Country: US (occurrence: US)
  Receive Date: 20211117
  Receipt Date: 20211117
  Transmission Date: 20220303
  Serious: No
  Sender: FDA-Public Use
  Company Number: US-ALLERGAN-2048925US

PATIENT
  Sex: Female

DRUGS (2)
  1. COMBIGAN [Suspect]
     Active Substance: BRIMONIDINE TARTRATE\TIMOLOL MALEATE
     Indication: Product used for unknown indication
     Dosage: 1 GTT, BID
     Route: 047
  2. LATANOPROST [Concomitant]
     Active Substance: LATANOPROST

REACTIONS (3)
  - Ocular hyperaemia [Unknown]
  - Eyelid oedema [Unknown]
  - Vision blurred [Unknown]
